FAERS Safety Report 7496817-X (Version None)
Quarter: 2011Q2

REPORT INFORMATION
  Report Type: 
  Country: None (occurrence: None)
  Receive Date: 20110523
  Receipt Date: 20110518
  Transmission Date: 20111010
  Serious: Yes (Other)
  Sender: FDA-Public Use
  Company Number: ES-TEVA-280499ISR

PATIENT
  Age: 46 Year
  Sex: Male

DRUGS (2)
  1. RIBAVIRIN [Suspect]
     Dosage: 1000 MILLIGRAM;
     Route: 048
  2. PEGINTERFERON ALFA-2B [Suspect]
     Dosage: 1.5 MICROGRAM;
     Route: 058

REACTIONS (5)
  - RETINAL VEIN THROMBOSIS [None]
  - ARTHRALGIA [None]
  - ASTHENIA [None]
  - MYALGIA [None]
  - ANAEMIA [None]
